FAERS Safety Report 20040374 (Version 1)
Quarter: 2021Q4

REPORT INFORMATION
  Report Type: Spontaneous
  Country: US (occurrence: None)
  Receive Date: 20211105
  Receipt Date: 20211105
  Transmission Date: 20220303
  Serious: Yes (Other)
  Sender: FDA-Public Use
  Company Number: None

PATIENT
  Age: 21 Year
  Sex: Female

DRUGS (2)
  1. CASIRIVIMAB [Suspect]
     Active Substance: CASIRIVIMAB
     Indication: COVID-19
     Dosage: FREQUENCY : ONCE;?OTHER ROUTE : IV;?
     Route: 050
  2. IMDEVIMAB [Suspect]
     Active Substance: IMDEVIMAB
     Indication: COVID-19
     Dosage: FREQUENCY : ONCE;?OTHER ROUTE : IV;?
     Route: 050

REACTIONS (5)
  - Feeling abnormal [None]
  - Erythema [None]
  - Flushing [None]
  - Emotional distress [None]
  - Infusion related reaction [None]

NARRATIVE: CASE EVENT DATE: 20211011
